FAERS Safety Report 9401014 (Version 1)
Quarter: 2013Q3

REPORT INFORMATION
  Report Type: Spontaneous
  Country: US (occurrence: US)
  Receive Date: 20130715
  Receipt Date: 20130715
  Transmission Date: 20140515
  Serious: Yes (Other)
  Sender: FDA-Public Use
  Company Number: 2013SP001929

PATIENT
  Sex: Female

DRUGS (1)
  1. LEVALBUTEROL INHALATION SOLUTION [Suspect]
     Indication: PRODUCT USED FOR UNKNOWN INDICATION
     Route: 055

REACTIONS (2)
  - Pharyngeal oedema [Unknown]
  - Dyspnoea [Unknown]
